FAERS Safety Report 8225475-1 (Version None)
Quarter: 2012Q1

REPORT INFORMATION
  Report Type: 
  Country: None (occurrence: None)
  Receive Date: 20120321
  Receipt Date: 20120315
  Transmission Date: 20120608
  Serious: Yes (Death, Hospitalization)
  Sender: FDA-Public Use
  Company Number: KR-SANOFI-AVENTIS-2012SA017763

PATIENT

DRUGS (4)
  1. DOCETAXEL [Suspect]
     Dosage: DAY 1 OF CYCLE 3
     Route: 065
     Dates: start: 20070330
  2. ELOXATIN [Suspect]
     Dosage: DAY 1 OF CYCLE 3
     Route: 065
     Dates: start: 20070330
  3. ELOXATIN [Suspect]
     Route: 065
  4. DOCETAXEL [Suspect]
     Route: 065

REACTIONS (5)
  - PYREXIA [None]
  - DYSPNOEA [None]
  - POSTOPERATIVE WOUND INFECTION [None]
  - SEPTIC SHOCK [None]
  - MENTAL STATUS CHANGES [None]
